FAERS Safety Report 5541601-7 (Version None)
Quarter: 2007Q4

REPORT INFORMATION
  Report Type: 
  Country: None (occurrence: None)
  Receive Date: 20071205
  Receipt Date: 20071122
  Transmission Date: 20080405
  Serious: Yes (Hospitalization, Other)
  Sender: FDA-Public Use
  Company Number: 2007JP003018

PATIENT
  Age: 50 Year
  Sex: Male
  Weight: 69.8 kg

DRUGS (16)
  1. TACROLIMUS [Suspect]
     Indication: MYASTHENIA GRAVIS
     Dosage: 3 MG, D, ORAL, 2  MG, D, ORAL
     Route: 048
     Dates: end: 20051229
  2. TACROLIMUS [Suspect]
     Indication: MYASTHENIA GRAVIS
     Dosage: 3 MG, D, ORAL, 2  MG, D, ORAL
     Route: 048
     Dates: start: 20030911
  3. GASTER D            (FAMOTIDINE)                         ORODISPERSABL [Suspect]
     Indication: GASTRITIS
     Dosage: 10 MG, D, ORAL
     Route: 048
     Dates: start: 20030812
  4. LOSARTAN POTASSIUM [Suspect]
     Indication: HYPERTENSION
     Dosage: 50 MG, D, ORAL
     Route: 048
     Dates: start: 20031009
  5. PREDNISOLONE [Suspect]
     Indication: MYASTHENIA GRAVIS
     Dosage: 30 MG, D, ORAL, 27.5 MG, D, ORAL, 25 MG, D, ORAL, 22.5 MG, D, ORAL, 20 MG D, ORAL
     Route: 048
     Dates: start: 20030812, end: 20031008
  6. PREDNISOLONE [Suspect]
     Indication: MYASTHENIA GRAVIS
     Dosage: 30 MG, D, ORAL, 27.5 MG, D, ORAL, 25 MG, D, ORAL, 22.5 MG, D, ORAL, 20 MG D, ORAL
     Route: 048
     Dates: start: 20031009, end: 20031105
  7. PREDNISOLONE [Suspect]
     Indication: MYASTHENIA GRAVIS
     Dosage: 30 MG, D, ORAL, 27.5 MG, D, ORAL, 25 MG, D, ORAL, 22.5 MG, D, ORAL, 20 MG D, ORAL
     Route: 048
     Dates: start: 20031106, end: 20031203
  8. PREDNISOLONE [Suspect]
     Indication: MYASTHENIA GRAVIS
     Dosage: 30 MG, D, ORAL, 27.5 MG, D, ORAL, 25 MG, D, ORAL, 22.5 MG, D, ORAL, 20 MG D, ORAL
     Route: 048
     Dates: start: 20031204, end: 20040104
  9. PREDNISOLONE [Suspect]
     Indication: MYASTHENIA GRAVIS
     Dosage: 30 MG, D, ORAL, 27.5 MG, D, ORAL, 25 MG, D, ORAL, 22.5 MG, D, ORAL, 20 MG D, ORAL
     Route: 048
     Dates: start: 20040105
  10. SULFASALAZINE [Concomitant]
  11. MESALAMINE [Concomitant]
  12. MESALAZINE                                (MESALAZINE) SUPPOSITORY [Concomitant]
     Route: 054
  13. CEFOPERAZONE SODIUM/SULBACTAM SODIUM [Concomitant]
  14. SOLUTIONS FOR PARENTERAL NUTRITION INJECTION [Concomitant]
  15. SULTAMICILLIN                (SULTAMICILLIN) INJECTION [Concomitant]
  16. PREDNISONE [Concomitant]

REACTIONS (13)
  - COLITIS ULCERATIVE [None]
  - DIABETES MELLITUS [None]
  - DRUG ERUPTION [None]
  - ERYSIPELAS [None]
  - FEELING HOT [None]
  - INFECTION [None]
  - LYMPHOCYTE COUNT DECREASED [None]
  - NASAL DISORDER [None]
  - NEUTROPHIL COUNT INCREASED [None]
  - OBESITY [None]
  - PYREXIA [None]
  - STREPTOCOCCAL IDENTIFICATION TEST POSITIVE [None]
  - WHITE BLOOD CELL COUNT INCREASED [None]
